FAERS Safety Report 4838890-0 (Version None)
Quarter: 2005Q4

REPORT INFORMATION
  Report Type: 
  Country: None (occurrence: None)
  Receive Date: 20051129
  Receipt Date: 20050923
  Transmission Date: 20060501
  Serious: No
  Sender: FDA-Public Use
  Company Number: US-GLAXOSMITHKLINE-A0575702A

PATIENT
  Age: 46 Year
  Sex: Female

DRUGS (6)
  1. LOTRONEX [Suspect]
     Indication: IRRITABLE BOWEL SYNDROME
     Dosage: 1MG PER DAY
     Route: 048
  2. TYLENOL W/ CODEINE NO. 3 [Concomitant]
  3. DIAVAN [Concomitant]
  4. TOPAMAX [Concomitant]
  5. NEXIUM [Concomitant]
  6. ATIVAN [Concomitant]

REACTIONS (2)
  - DIARRHOEA [None]
  - MEDICATION ERROR [None]
